FAERS Safety Report 6532189-2 (Version None)
Quarter: 2010Q1

REPORT INFORMATION
  Report Type: 
  Country: None (occurrence: None)
  Receive Date: 20100108
  Receipt Date: 20091229
  Transmission Date: 20100710
  Serious: Yes (Death)
  Sender: FDA-Public Use
  Company Number: US-JNJFOC-20091207737

PATIENT
  Age: 91 Year
  Sex: Female
  Weight: 54.43 kg

DRUGS (3)
  1. TYLENOL (CAPLET) [Suspect]
  2. TYLENOL (CAPLET) [Suspect]
     Indication: ARTHRITIS
     Dosage: TAKING THIS DOSE FOR SIX MONTHS
  3. BLOOD PRESSURE MEDICATION NOS [Concomitant]

REACTIONS (5)
  - ABDOMINAL PAIN UPPER [None]
  - DEATH [None]
  - EATING DISORDER [None]
  - INAPPROPRIATE SCHEDULE OF DRUG ADMINISTRATION [None]
  - PRODUCT QUALITY ISSUE [None]
